FAERS Safety Report 5234903-5 (Version None)
Quarter: 2007Q1

REPORT INFORMATION
  Report Type: 
  Country: None (occurrence: None)
  Receive Date: 20070209
  Receipt Date: 20070205
  Transmission Date: 20070707
  Serious: Yes (Hospitalization)
  Sender: FDA-Public Use
  Company Number: CA-AMGEN-US207982

PATIENT
  Sex: Male
  Weight: 71 kg

DRUGS (14)
  1. ARANESP [Suspect]
     Indication: RENAL FAILURE CHRONIC
     Route: 058
     Dates: start: 20050921
  2. TEMAZEPAM [Concomitant]
  3. NEXIUM [Concomitant]
  4. LANTUS [Concomitant]
  5. HUMALOG [Concomitant]
  6. SYNTHROID [Concomitant]
     Dates: start: 20061130
  7. POTASSIUM CHLORIDE [Concomitant]
     Dates: start: 20061220
  8. MOTILIUM [Concomitant]
  9. LIPITOR [Concomitant]
  10. QUININE [Concomitant]
     Dates: start: 20051121
  11. LASIX [Concomitant]
  12. SPIRONOLACTONE [Concomitant]
  13. COREG [Concomitant]
  14. AMARYL [Concomitant]

REACTIONS (1)
  - REFRACTORY ANAEMIA [None]
